FAERS Safety Report 4606836-6 (Version None)
Quarter: 2005Q1

REPORT INFORMATION
  Report Type: 
  Country: None (occurrence: None)
  Receive Date: 20050309
  Receipt Date: 20050217
  Transmission Date: 20050727
  Serious: Yes (Hospitalization, Other)
  Sender: FDA-Public Use
  Company Number: US_0411108051

PATIENT
  Age: 43 Year
  Sex: Female
  Weight: 75 kg

DRUGS (48)
  1. ZYPREXA [Suspect]
     Indication: SCHIZOPHRENIA
     Dosage: 10 MG/2 AT BEDTIME
     Dates: start: 19980511, end: 20000925
  2. DARVON COMPOUND-65 [Concomitant]
  3. ZANAC (RANITIDINE HYDROCHLORIDE) [Concomitant]
  4. DEMEROL [Concomitant]
  5. XANAX (ALPRAZOLAM DUM0 [Concomitant]
  6. FIORICET [Concomitant]
  7. ELAVIL [Concomitant]
  8. LIPITOR [Concomitant]
  9. NUBAIN [Concomitant]
  10. VISTARIL (HYDROXZINE EMBONATE) [Concomitant]
  11. TORADOL [Concomitant]
  12. PRILOSEC (OMEPRAZOLE RATIOPHARM) [Concomitant]
  13. DROPERIDOL [Concomitant]
  14. PHENERGAN [Concomitant]
  15. INDERAL [Concomitant]
  16. SINEQUAN [Concomitant]
  17. CHOLESTYRAMINE [Concomitant]
  18. BENADRYL [Concomitant]
  19. VALIRUM (DIAZEPAM) [Concomitant]
  20. ZYRTEC [Concomitant]
  21. SATADOL (BUTORPHANOL TARTRATE) [Concomitant]
  22. NORTRIPTYLINE HCL [Concomitant]
  23. TRAZODONE HCL [Concomitant]
  24. SUMATRIPTAN [Concomitant]
  25. NASAREL (FLUNISOLIDE) [Concomitant]
  26. FLOVENT (FLUTICASONE PROPIONATE0 [Concomitant]
  27. GENTAMICIN [Concomitant]
  28. RISPERIDONE [Concomitant]
  29. ULTRAM [Concomitant]
  30. ALBUTEROL [Concomitant]
  31. FLEXTRA-DE [Concomitant]
  32. GUAIFENEX [Concomitant]
  33. PRAVASTATIN [Concomitant]
  34. CYCLOBENZAPRINE HCL [Concomitant]
  35. SULFAMETHOXAZOLE [Concomitant]
  36. ORLISTAT [Concomitant]
  37. RIZATRIPTAN [Concomitant]
  38. HISTEX [Concomitant]
  39. ZITHROMAX [Concomitant]
  40. ACETAMINOPHEN W/HYDROCODONE [Concomitant]
  41. PROPOXYPHENE HCL [Concomitant]
  42. PREVACID [Concomitant]
  43. ZOLOFT [Concomitant]
  44. CLARITIN-D [Concomitant]
  45. DOLGIC LQ [Concomitant]
  46. IMODIUM [Concomitant]
  47. CATAFLAM [Concomitant]
  48. PRAVACHOL [Concomitant]

REACTIONS (30)
  - ARTHRALGIA [None]
  - ARTHRITIS [None]
  - BACK PAIN [None]
  - BLOOD CHOLESTEROL INCREASED [None]
  - BRONCHITIS [None]
  - CLOSED HEAD INJURY [None]
  - DIABETES MELLITUS NON-INSULIN-DEPENDENT [None]
  - DIZZINESS [None]
  - DYSARTHRIA [None]
  - FALL [None]
  - FLUSHING [None]
  - HYPOAESTHESIA [None]
  - HYPOGLYCAEMIA [None]
  - INSOMNIA [None]
  - LIVER DISORDER [None]
  - MIGRAINE [None]
  - NAUSEA [None]
  - NECK PAIN [None]
  - OVERDOSE [None]
  - PAIN IN EXTREMITY [None]
  - PANCREATITIS [None]
  - PARAESTHESIA [None]
  - RENAL IMPAIRMENT [None]
  - ROAD TRAFFIC ACCIDENT [None]
  - SKIN LACERATION [None]
  - SLEEP TERROR [None]
  - TOOTH ABSCESS [None]
  - URINARY TRACT INFECTION [None]
  - VOMITING [None]
  - WEIGHT INCREASED [None]
